FAERS Safety Report 10666416 (Version 1)
Quarter: 2014Q4

REPORT INFORMATION
  Report Type: Spontaneous
  Country: US (occurrence: US)
  Receive Date: 20141220
  Receipt Date: 20141220
  Transmission Date: 20150529
  Serious: No
  Sender: FDA-Public Use
  Company Number: US-BAUSCH-SYM-2014-19669

PATIENT
  Age: 29 Year

DRUGS (2)
  1. XENAZINE [Suspect]
     Active Substance: TETRABENAZINE
     Dosage: 1 TABLET, TWICE DAILY
     Route: 048
     Dates: start: 201404, end: 201404
  2. XENAZINE [Suspect]
     Active Substance: TETRABENAZINE
     Indication: PRODUCT USED FOR UNKNOWN INDICATION
     Dosage: 1 TABLET, ONCE DAILY
     Route: 048
     Dates: start: 20140330, end: 201404

REACTIONS (3)
  - Palpitations [Unknown]
  - Heart rate increased [Unknown]
  - Feeling jittery [Unknown]

NARRATIVE: CASE EVENT DATE: 201404
